FAERS Safety Report 5498369-2 (Version None)
Quarter: 2007Q4

REPORT INFORMATION
  Report Type: 
  Country: None (occurrence: None)
  Receive Date: 20071025
  Receipt Date: 20071021
  Transmission Date: 20080405
  Serious: Yes (Death)
  Sender: FDA-Public Use
  Company Number: IT-GENENTECH-250148

PATIENT

DRUGS (12)
  1. RITUXAN [Suspect]
     Indication: B-CELL LYMPHOMA
     Dosage: 375 MG/M2, UNK
  2. DOXORUBICIN HCL [Suspect]
     Indication: B-CELL LYMPHOMA
     Dosage: 50 MG/M2, UNK
  3. DOXORUBICIN HCL [Suspect]
     Dosage: 75 MG/M2, UNK
  4. VINCRISTINE [Suspect]
     Indication: B-CELL LYMPHOMA
  5. PREDNISONE [Suspect]
     Indication: B-CELL LYMPHOMA
  6. CYCLOPHOSPHAMIDE [Suspect]
     Indication: B-CELL LYMPHOMA
     Dosage: 7 G/M2, UNK
  7. CYTARABINE [Suspect]
     Indication: B-CELL LYMPHOMA
     Dosage: 2 G/M2, UNK
  8. ETOPOSIDE [Suspect]
     Indication: B-CELL LYMPHOMA
     Dosage: 2.4 G/M2, UNK
  9. CISPLATIN [Suspect]
     Indication: B-CELL LYMPHOMA
     Dosage: 100 MG/M2, UNK
  10. MITOMYCIN [Suspect]
     Indication: B-CELL LYMPHOMA
     Dosage: 60 MG/M2, UNK
  11. MELPHALAN [Suspect]
     Indication: B-CELL LYMPHOMA
     Dosage: 180 MG/M2, UNK
  12. GCSF OR GMCSF [Concomitant]
     Indication: DRUG USE FOR UNKNOWN INDICATION

REACTIONS (1)
  - PNEUMONIA [None]
